FAERS Safety Report 7544495-3 (Version None)
Quarter: 2011Q2

REPORT INFORMATION
  Report Type: 
  Country: None (occurrence: None)
  Receive Date: 20110613
  Receipt Date: 20110607
  Transmission Date: 20111010
  Serious: Yes (Other)
  Sender: FDA-Public Use
  Company Number: US-RB-028658-11

PATIENT
  Age: 49 Year
  Sex: Male

DRUGS (1)
  1. SUBOXONE [Suspect]
     Indication: PRODUCT USED FOR UNKNOWN INDICATION
     Dosage: DOSAGE INFORMATION UNKNOWN- SUBLINGUAL FILM
     Route: 065
     Dates: end: 20110601

REACTIONS (9)
  - SUBSTANCE ABUSE [None]
  - NEOPLASM MALIGNANT [None]
  - DYSSTASIA [None]
  - CARDIAC DISORDER [None]
  - DRUG WITHDRAWAL SYNDROME [None]
  - DECREASED APPETITE [None]
  - MUSCULOSKELETAL DISCOMFORT [None]
  - INSOMNIA [None]
  - ASTHENIA [None]
